FAERS Safety Report 4567277-3 (Version None)
Quarter: 2005Q1

REPORT INFORMATION
  Report Type: 
  Country: None (occurrence: None)
  Receive Date: 20050127
  Receipt Date: 20050117
  Transmission Date: 20050727
  Serious: Yes (Other)
  Sender: FDA-Public Use
  Company Number: 200510247BCC

PATIENT
  Age: 14 Year
  Sex: Female
  Weight: 90.7194 kg

DRUGS (2)
  1. MIDOL [Suspect]
     Indication: DYSMENORRHOEA
     Dosage: 1000/120/30 MG, QD, ORAL
     Route: 048
     Dates: start: 20050113, end: 20050114
  2. TYLENOL [Interacting]

REACTIONS (2)
  - PANIC ATTACK [None]
  - VOMITING [None]
